FAERS Safety Report 9251872 (Version 1)
Quarter: 2013Q2

REPORT INFORMATION
  Report Type: Spontaneous
  Country: US (occurrence: US)
  Receive Date: 20130424
  Receipt Date: 20130424
  Transmission Date: 20140414
  Serious: Yes (Other)
  Sender: FDA-Public Use
  Company Number: US-PFIZER INC-2013124290

PATIENT
  Age: 48 Year
  Sex: Female
  Weight: 59 kg

DRUGS (3)
  1. PREMARIN [Suspect]
     Indication: HORMONE REPLACEMENT THERAPY
     Dosage: 1 G, 1X/DAY
     Route: 067
  2. PREMARIN [Suspect]
     Indication: HORMONE REPLACEMENT THERAPY
     Dosage: UNK
  3. COUMADIN [Concomitant]
     Indication: CARDIAC DISORDER
     Dosage: 7.5MG AND 10MG EVERY ALTERNATE DAY
     Dates: start: 1986

REACTIONS (2)
  - Urinary tract infection [Unknown]
  - Haematuria [Unknown]
